FAERS Safety Report 8443773-3 (Version None)
Quarter: 2012Q2

REPORT INFORMATION
  Report Type: 
  Country: None (occurrence: None)
  Receive Date: 20120618
  Receipt Date: 20120612
  Transmission Date: 20120825
  Serious: No
  Sender: FDA-Public Use
  Company Number: US-PFIZER INC-2012141678

PATIENT
  Sex: Female

DRUGS (5)
  1. OXYCODONE HCL [Suspect]
     Dosage: UNK
  2. METFORMIN [Suspect]
     Dosage: UNK
  3. MIRTAZAPINE [Suspect]
     Dosage: UNK
  4. HYDROCODONE [Suspect]
     Dosage: UNK
  5. PENICILLIN G POTASSIUM [Suspect]
     Dosage: UNK

REACTIONS (1)
  - DRUG HYPERSENSITIVITY [None]
